FAERS Safety Report 7423536-8 (Version None)
Quarter: 2011Q2

REPORT INFORMATION
  Report Type: 
  Country: None (occurrence: None)
  Receive Date: 20110419
  Receipt Date: 20110408
  Transmission Date: 20111010
  Serious: Yes (Other)
  Sender: FDA-Public Use
  Company Number: PHHY2011MX29916

PATIENT
  Age: 76 Year
  Sex: Male

DRUGS (1)
  1. EXELON [Suspect]
     Indication: PARKINSON'S DISEASE
     Dosage: PATCH 5, PER DAY
     Route: 062
     Dates: start: 20110301

REACTIONS (3)
  - FALL [None]
  - WOUND [None]
  - HEAD INJURY [None]
